FAERS Safety Report 4674762-2 (Version None)
Quarter: 2005Q2

REPORT INFORMATION
  Report Type: 
  Country: None (occurrence: None)
  Receive Date: 20050526
  Receipt Date: 20041011
  Transmission Date: 20051028
  Serious: Yes (Hospitalization)
  Sender: FDA-Public Use
  Company Number: 2004PK01691

PATIENT
  Age: 26668 Day
  Sex: Male

DRUGS (4)
  1. ZD1839 [Suspect]
     Indication: NON-SMALL CELL LUNG CANCER
     Route: 048
     Dates: start: 20040726, end: 20040920
  2. ASPIRIN [Concomitant]
     Route: 048
  3. SEREVENT [Concomitant]
     Indication: BRONCHIAL OBSTRUCTION
     Route: 055
  4. ATROVENT [Concomitant]
     Indication: BRONCHIAL OBSTRUCTION
     Route: 055

REACTIONS (2)
  - INTERSTITIAL LUNG DISEASE [None]
  - TUMOUR HAEMORRHAGE [None]
